FAERS Safety Report 17288520 (Version 1)
Quarter: 2020Q1

REPORT INFORMATION
  Report Type: Spontaneous
  Country: US (occurrence: US)
  Receive Date: 20191231
  Receipt Date: 20191231
  Transmission Date: 20200409
  Serious: Yes (Death)
  Sender: FDA-Public Use
  Company Number: None

PATIENT
  Age: 80 Year
  Sex: Male
  Weight: 87.1 kg

DRUGS (2)
  1. BEVACIZUMAB 800 MG (10MG/KG) [Suspect]
     Active Substance: BEVACIZUMAB
     Indication: GLIOBLASTOMA
     Route: 042
     Dates: start: 20190823, end: 20191017
  2. NIVOLUMAB 240 MG [Suspect]
     Active Substance: NIVOLUMAB
     Indication: GLIOBLASTOMA
     Route: 042
     Dates: start: 20190823, end: 20191017

REACTIONS (1)
  - Death [None]

NARRATIVE: CASE EVENT DATE: 20191228
